FAERS Safety Report 19495214 (Version 8)
Quarter: 2025Q4

REPORT INFORMATION
  Report Type: Spontaneous
  Country: EU (occurrence: EU)
  Receive Date: 20210706
  Receipt Date: 20251107
  Transmission Date: 20260118
  Serious: Yes (Death, Other)
  Sender: CELLTRION
  Company Number: EU-CELLTRION INC.-2021IT009017

PATIENT

DRUGS (21)
  1. RITUXIMAB [Suspect]
     Active Substance: RITUXIMAB
     Indication: Dermatomyositis
     Dosage: UNK
     Route: 065
  2. RITUXIMAB [Suspect]
     Active Substance: RITUXIMAB
     Dosage: IN THE FOLLOWING 2 MONTHS, IVIG AND RTX WERE RECEIVED WHILE CONTINUING GLUCOCORTICOIDS
     Route: 065
  3. ENVARSUS XR [Suspect]
     Active Substance: TACROLIMUS
     Indication: Dermatomyositis
     Dosage: UNK
     Route: 065
  4. METHYLPREDNISOLONE [Suspect]
     Active Substance: METHYLPREDNISOLONE
     Indication: Dermatomyositis
     Dosage: 0.7 MG/KG DAILY TO BE SLOWLY TAPERED
     Route: 065
  5. METHYLPREDNISOLONE [Suspect]
     Active Substance: METHYLPREDNISOLONE
     Dosage: 0.7 MG/KG DAILY TO BE SLOWLY TAPERED
  6. MYCOPHENOLATE MOFETIL [Suspect]
     Active Substance: MYCOPHENOLATE MOFETIL
     Indication: Dermatomyositis
     Dosage: 1 GR DAILY, WHICH WAS INCREASED PROGRESSIVELY UP TO 3 GR DAILY OVER 3 WEEKS/OVER 3 WEEKS
     Route: 065
  7. MYCOPHENOLATE MOFETIL [Suspect]
     Active Substance: MYCOPHENOLATE MOFETIL
     Dosage: 1 GRAM, QD; REINTRODUCED WITH LOW-DOSE PREDNISONE
     Route: 065
  8. MYCOPHENOLATE MOFETIL [Suspect]
     Active Substance: MYCOPHENOLATE MOFETIL
     Dosage: REINTRODUCED AGAIN
  9. MYCOPHENOLATE MOFETIL [Suspect]
     Active Substance: MYCOPHENOLATE MOFETIL
     Dosage: 3 GRAM
     Route: 065
  10. MYCOPHENOLATE MOFETIL [Suspect]
     Active Substance: MYCOPHENOLATE MOFETIL
     Dosage: 1 G, EVERY 1 DAY (1 GRAM, QD; REINTRODUCED WITH LOW-DOSE PREDNISONE)
  11. PREDNISONE [Suspect]
     Active Substance: PREDNISONE
     Indication: Dermatomyositis
     Dosage: 10 MG; LOW-DOSE TOGETHER WITH MYCOPHENOLATE MOFETIL
     Route: 048
  12. PREDNISONE [Suspect]
     Active Substance: PREDNISONE
     Dosage: 10 MG
     Route: 048
  13. PREDNISONE [Suspect]
     Active Substance: PREDNISONE
     Dosage: LOW-DOSE TOGETHER WITH MYCOPHENOLATE MOFETIL
     Route: 048
  14. PREDNISONE [Suspect]
     Active Substance: PREDNISONE
     Dosage: 10 MG; LOW-DOSE TOGETHER WITH MYCOPHENOLATE MOFETIL
     Route: 048
  15. TACROLIMUS [Suspect]
     Active Substance: TACROLIMUS
     Indication: Dermatomyositis
     Dosage: 1 GR
     Route: 065
  16. BEGELOMAB [Concomitant]
     Active Substance: BEGELOMAB
     Indication: Dermatomyositis
     Dosage: 4 MG/M2 DAILY FOR 5 CONSECUTIVE DAYS; NEW 5-DAY CYCLE AT THE DOSAGE OF 4 MG/M2 DAILY FOR 5 CONSECUTI
     Route: 042
  17. BEGELOMAB [Concomitant]
     Active Substance: BEGELOMAB
     Dosage: NEW 5-DAY CYCLE AT THE DOSAGE OF 4 MG/M2 DAILY FOR 5 CONSECUTIVE DAYS (3 MONTHS AND A HALF FROM THE
     Route: 042
  18. BEGELOMAB [Concomitant]
     Active Substance: BEGELOMAB
     Dosage: NEW 5-DAY CYCLE AT 4 MG/M2 DAILY FOR 5 CONSECUTIVE DAYS (3 WEEKS FROM THE PREVIOUS ONE; SOON AFTER I
     Route: 042
  19. BEGELOMAB [Concomitant]
     Active Substance: BEGELOMAB
     Dosage: FOLLOWED BY MAINTENANCE THERAPY AT THE DOSAGE OF 4 MG/M2 EVERY OTHER DAY FOR ADDITIONAL ELEVEN INFUS
     Route: 042
  20. BEGELOMAB [Concomitant]
     Active Substance: BEGELOMAB
     Dosage: UNK
     Route: 042
  21. BEGELOMAB [Concomitant]
     Active Substance: BEGELOMAB
     Dosage: 4 MG/M2 (4 MG/M2 DAILY FOR 5 CONSECUTIVE DAYS; NEW 5-DAY CYCLE AT THE DOSAGE OF 4 MG/M2 DAILY FOR 5
     Route: 042

REACTIONS (11)
  - Pneumonia aspiration [Fatal]
  - Respiratory failure [Fatal]
  - Condition aggravated [Unknown]
  - Dehiscence [Unknown]
  - Dermatomyositis [Unknown]
  - Ileal perforation [Unknown]
  - Acute hepatitis C [Unknown]
  - Enterococcal sepsis [Unknown]
  - Fungal peritonitis [Unknown]
  - Drug ineffective for unapproved indication [Unknown]
  - Off label use [Unknown]
